FAERS Safety Report 9012791 (Version 1)
Quarter: 2013Q1

REPORT INFORMATION
  Report Type: Spontaneous
  Country: US (occurrence: US)
  Receive Date: 20130114
  Receipt Date: 20130114
  Transmission Date: 20140127
  Serious: No
  Sender: FDA-Public Use
  Company Number: US-009507513-1301USA004540

PATIENT
  Age: 73 Year
  Sex: Male

DRUGS (7)
  1. SINEMET [Suspect]
     Indication: PARKINSON^S DISEASE
     Dosage: 25/250
     Route: 048
  2. METOPROLOL [Concomitant]
  3. GABAPENTIN [Concomitant]
  4. CRESTOR [Concomitant]
  5. RANEXA [Concomitant]
  6. DEXILANT [Concomitant]
  7. FINASTERIDE [Concomitant]

REACTIONS (2)
  - Wrong technique in drug usage process [Unknown]
  - Gait disturbance [Unknown]
